FAERS Safety Report 15155998 (Version 1)
Quarter: 2018Q3

REPORT INFORMATION
  Report Type: Spontaneous
  Country: US (occurrence: US)
  Receive Date: 20180620
  Receipt Date: 20180620
  Transmission Date: 20181010
  Serious: Yes (Other)
  Sender: FDA-Public Use
  Company Number: None

PATIENT
  Age: 71 Year
  Sex: Male
  Weight: 60 kg

DRUGS (8)
  1. NIFEDIPINE. [Concomitant]
     Active Substance: NIFEDIPINE
  2. ISENTRESS [Concomitant]
     Active Substance: RALTEGRAVIR POTASSIUM
  3. METOPROLOL. [Concomitant]
     Active Substance: METOPROLOL
  4. LAMIVUDINE. [Concomitant]
     Active Substance: LAMIVUDINE
  5. LINZESS [Suspect]
     Active Substance: LINACLOTIDE
     Indication: CONSTIPATION
     Dosage: ?          QUANTITY:1 DF DOSAGE FORM;?
     Route: 048
     Dates: start: 20180424, end: 20180507
  6. LOSARTAN POTASSIUM. [Concomitant]
     Active Substance: LOSARTAN POTASSIUM
  7. HEMOPHIL M [Concomitant]
  8. EDURANT [Concomitant]
     Active Substance: RILPIVIRINE HYDROCHLORIDE

REACTIONS (5)
  - Dizziness [None]
  - Balance disorder [None]
  - Fall [None]
  - Back pain [None]
  - Confusional state [None]

NARRATIVE: CASE EVENT DATE: 20180501
